FAERS Safety Report 16102050 (Version 1)
Quarter: 2019Q1

REPORT INFORMATION
  Report Type: Spontaneous
  Country: FR (occurrence: FR)
  Receive Date: 20190321
  Receipt Date: 20190321
  Transmission Date: 20190418
  Serious: Yes (Hospitalization)
  Sender: FDA-Public Use
  Company Number: FR-NOVOPROD-652414

PATIENT
  Age: 62 Year
  Sex: Male

DRUGS (2)
  1. GADOVIST [Suspect]
     Active Substance: GADOBUTROL
     Indication: NUCLEAR MAGNETIC RESONANCE IMAGING
     Dosage: 9 ML
     Route: 042
     Dates: start: 20190131, end: 20190131
  2. GLUCAGEN [Suspect]
     Active Substance: GLUCAGON HYDROCHLORIDE
     Indication: NUCLEAR MAGNETIC RESONANCE IMAGING
     Dosage: 1 DF, QD
     Route: 042
     Dates: start: 20190131, end: 20190131

REACTIONS (2)
  - Cyanosis [Unknown]
  - Erythema [Unknown]

NARRATIVE: CASE EVENT DATE: 20190131
